FAERS Safety Report 11443821 (Version 4)
Quarter: 2016Q1

REPORT INFORMATION
  Report Type: Spontaneous
  Country: ES (occurrence: ES)
  Receive Date: 20150901
  Receipt Date: 20160101
  Transmission Date: 20160525
  Serious: Yes (Other)
  Sender: FDA-Public Use
  Company Number: ES-AMGEN-ESPSP2015072530

PATIENT
  Age: 48 Year
  Sex: Female

DRUGS (8)
  1. ARAVA [Suspect]
     Active Substance: LEFLUNOMIDE
     Indication: RHEUMATOID ARTHRITIS
     Dosage: 1 DF, 1X/DAY
     Route: 065
  2. PARACETAMOL [Concomitant]
     Active Substance: ACETAMINOPHEN
     Indication: PAIN
     Dosage: UNK, AS NEEDED
  3. ENBREL [Suspect]
     Active Substance: ETANERCEPT
     Dosage: 50 MG, WEEKLY
     Route: 058
     Dates: start: 2015
  4. PARACETAMOL [Concomitant]
     Active Substance: ACETAMINOPHEN
     Dosage: UNK, AS NEEDED
  5. FLATORIL                           /00807201/ [Concomitant]
     Indication: FLATULENCE
     Dosage: UNK, AS NEEDED
  6. ADOLQUIR [Concomitant]
     Indication: PAIN
     Dosage: UNK UNK, 1X/DAY
     Dates: end: 2015
  7. ENBREL [Suspect]
     Active Substance: ETANERCEPT
     Indication: RHEUMATOID ARTHRITIS
     Dosage: 50 MG, WEEKLY
     Route: 058
     Dates: start: 20150407, end: 20150901
  8. IBUPROFEN. [Concomitant]
     Active Substance: IBUPROFEN
     Indication: PAIN
     Dosage: UNK, AS NEEDED
     Route: 048

REACTIONS (13)
  - Dysgeusia [Not Recovered/Not Resolved]
  - Injection site erythema [Recovered/Resolved]
  - Condition aggravated [Not Recovered/Not Resolved]
  - Lip disorder [Not Recovered/Not Resolved]
  - Rheumatoid arthritis [Not Recovered/Not Resolved]
  - Hyperhidrosis [Recovered/Resolved]
  - Salivary hypersecretion [Not Recovered/Not Resolved]
  - Skin depigmentation [Not Recovered/Not Resolved]
  - Injection site discolouration [Recovered/Resolved]
  - Oral pain [Not Recovered/Not Resolved]
  - Injection site haematoma [Recovered/Resolved]
  - Injection site pain [Recovered/Resolved]
  - Condition aggravated [Recovered/Resolved]

NARRATIVE: CASE EVENT DATE: 2015
